FAERS Safety Report 12632178 (Version 2)
Quarter: 2016Q3

REPORT INFORMATION
  Report Type: Spontaneous
  Country: US (occurrence: US)
  Receive Date: 20160808
  Receipt Date: 20160808
  Transmission Date: 20161109
  Serious: No
  Sender: FDA-Public Use
  Company Number: US-BEH-2016062081

PATIENT
  Sex: Female
  Weight: 96 kg

DRUGS (14)
  1. HIZENTRA [Suspect]
     Active Substance: HUMAN IMMUNOGLOBULIN G
     Indication: IMMUNODEFICIENCY COMMON VARIABLE
     Route: 058
     Dates: start: 20120530
  2. RESTASIS [Concomitant]
     Active Substance: CYCLOSPORINE
  3. DIPHENHYDRAMINE. [Concomitant]
     Active Substance: DIPHENHYDRAMINE
  4. ACETAMINOPHEN. [Concomitant]
     Active Substance: ACETAMINOPHEN
  5. LMX [Concomitant]
     Active Substance: LIDOCAINE
  6. CYMBALTA [Concomitant]
     Active Substance: DULOXETINE HYDROCHLORIDE
  7. EPIPEN [Concomitant]
     Active Substance: EPINEPHRINE
  8. DEPLIN [Concomitant]
     Active Substance: LEVOMEFOLATE CALCIUM
  9. CALCIUM [Concomitant]
     Active Substance: CALCIUM
  10. MAGNESIUM [Concomitant]
     Active Substance: MAGNESIUM
  11. ASPIRIN. [Concomitant]
     Active Substance: ASPIRIN
  12. OMEPRAZOLE. [Concomitant]
     Active Substance: OMEPRAZOLE
  13. SYNTHROID [Concomitant]
     Active Substance: LEVOTHYROXINE SODIUM
  14. GABAPENTIN. [Concomitant]
     Active Substance: GABAPENTIN

REACTIONS (2)
  - Sinusitis [Unknown]
  - Bronchitis [Unknown]
